FAERS Safety Report 15240785 (Version 1)
Quarter: 2018Q3

REPORT INFORMATION
  Report Type: Report from Study
  Country: BR (occurrence: BR)
  Receive Date: 20180804
  Receipt Date: 20180804
  Transmission Date: 20181010
  Serious: Yes (Other)
  Sender: FDA-Public Use
  Company Number: BR-SAKK-2018SA201140AA

PATIENT
  Age: 53 Year
  Sex: Female
  Weight: 57 kg

DRUGS (3)
  1. INSULIN GLARGINE [Suspect]
     Active Substance: INSULIN GLARGINE
     Dosage: 28 IU, QD
     Route: 058
  2. INSULIN GLARGINE [Suspect]
     Active Substance: INSULIN GLARGINE
     Indication: TYPE 2 DIABETES MELLITUS
     Dosage: 16 IU, QD
     Route: 058
     Dates: start: 20180520
  3. GALVUS MET [Concomitant]
     Active Substance: METFORMIN HYDROCHLORIDE\VILDAGLIPTIN
     Dosage: 1000 MG, UNK

REACTIONS (13)
  - Constipation [Unknown]
  - Eye swelling [Unknown]
  - Cataract operation [Unknown]
  - Hand deformity [Unknown]
  - Vision blurred [Unknown]
  - Peripheral swelling [Unknown]
  - Myositis [Unknown]
  - Carpal tunnel decompression [Unknown]
  - Cataract operation [Unknown]
  - Blood glucose increased [Unknown]
  - Pain in extremity [Unknown]
  - Muscular dystrophy [Unknown]
  - Muscle atrophy [Unknown]

NARRATIVE: CASE EVENT DATE: 20180712
